FAERS Safety Report 10525495 (Version 2)
Quarter: 2014Q4

REPORT INFORMATION
  Report Type: Report from Study
  Country: US (occurrence: US)
  Receive Date: 20141017
  Receipt Date: 20141025
  Transmission Date: 20150528
  Serious: Yes (Death, Hospitalization, Other)
  Sender: FDA-Public Use
  Company Number: US-ABBVIE-14K-163-1296430-00

PATIENT
  Age: 53 Year
  Sex: Male

DRUGS (1)
  1. HUMIRA [Suspect]
     Active Substance: ADALIMUMAB
     Indication: RHEUMATOID ARTHRITIS
     Route: 065
     Dates: start: 201311, end: 2014

REACTIONS (4)
  - Abdominal pain [Fatal]
  - Pyloric stenosis [Unknown]
  - Death [Fatal]
  - Sepsis [Fatal]

NARRATIVE: CASE EVENT DATE: 20140318
